FAERS Safety Report 12963950 (Version 1)
Quarter: 2016Q4

REPORT INFORMATION
  Report Type: Spontaneous
  Country: US (occurrence: US)
  Receive Date: 20161122
  Receipt Date: 20161122
  Transmission Date: 20170207
  Serious: No
  Sender: FDA-Public Use
  Company Number: US-SHIRE-US201617619

PATIENT
  Age: 8 Year
  Sex: Female

DRUGS (1)
  1. PENTASA [Suspect]
     Active Substance: MESALAMINE
     Indication: COLITIS ULCERATIVE
     Dosage: 250 MG, UNKNOWN
     Route: 048

REACTIONS (2)
  - Medication residue present [Unknown]
  - Drug administered to patient of inappropriate age [Unknown]
